FAERS Safety Report 20474550 (Version 1)
Quarter: 2022Q1

REPORT INFORMATION
  Report Type: Spontaneous
  Country: US (occurrence: US)
  Receive Date: 20220215
  Receipt Date: 20220215
  Transmission Date: 20220423
  Serious: Yes (Death)
  Sender: FDA-Public Use
  Company Number: US-PERRIGO-22US002262

PATIENT
  Age: 47 Year
  Sex: Female

DRUGS (12)
  1. NAPROXEN SODIUM [Suspect]
     Active Substance: NAPROXEN SODIUM
     Indication: Suspected suicide
     Dosage: UNK
     Route: 048
  2. ACETAMINOPHEN [Suspect]
     Active Substance: ACETAMINOPHEN
     Indication: Suspected suicide
     Dosage: UNKNOWN, UNKNOWN
     Route: 048
  3. BUPROPION [Suspect]
     Active Substance: BUPROPION
     Indication: Suspected suicide
     Dosage: UNK
     Route: 048
  4. QUETIAPINE [Suspect]
     Active Substance: QUETIAPINE
     Indication: Suspected suicide
     Dosage: UNK
     Route: 048
  5. CLONIDINE [Suspect]
     Active Substance: CLONIDINE
     Indication: Suspected suicide
     Dosage: UNK
     Route: 048
  6. PRAZOSIN [Suspect]
     Active Substance: PRAZOSIN
     Indication: Suspected suicide
     Dosage: UNK
     Route: 048
  7. LAMOTRIGINE [Suspect]
     Active Substance: LAMOTRIGINE
     Indication: Suspected suicide
     Dosage: UNK
     Route: 048
  8. SERTRALINE [Suspect]
     Active Substance: SERTRALINE HYDROCHLORIDE
     Indication: Suspected suicide
     Dosage: UNK
     Route: 048
  9. ALPRAZOLAM [Suspect]
     Active Substance: ALPRAZOLAM
     Indication: Suspected suicide
     Dosage: UNK
     Route: 048
  10. BUSPIRONE [Suspect]
     Active Substance: BUSPIRONE HYDROCHLORIDE
     Indication: Suspected suicide
     Dosage: UNK
     Route: 048
  11. CLONAZEPAM [Suspect]
     Active Substance: CLONAZEPAM
     Indication: Suspected suicide
     Dosage: UNK
     Route: 048
  12. PHENYLEPHRINE [Suspect]
     Active Substance: PHENYLEPHRINE HYDROCHLORIDE
     Indication: Suspected suicide
     Dosage: UNK
     Route: 048

REACTIONS (1)
  - Exposure to toxic agent [Fatal]

NARRATIVE: CASE EVENT DATE: 20200101
